FAERS Safety Report 23696678 (Version 1)
Quarter: 2024Q2

REPORT INFORMATION
  Report Type: Spontaneous
  Country: US (occurrence: None)
  Receive Date: 20240401
  Receipt Date: 20240401
  Transmission Date: 20240715
  Serious: No
  Sender: FDA-Public Use
  Company Number: None

PATIENT
  Age: 50 Year
  Sex: Female
  Weight: 114.3 kg

DRUGS (23)
  1. INGREZZA [Suspect]
     Active Substance: VALBENAZINE
     Indication: Tardive dyskinesia
     Dosage: 1 CAPSULE DAILY ORAL
     Route: 048
  2. baclofin [Concomitant]
  3. DITROPAN [Concomitant]
     Active Substance: OXYBUTYNIN CHLORIDE
  4. emgality [Concomitant]
  5. LATUDA [Concomitant]
  6. LYRICA [Concomitant]
  7. METFORMIN HYDROCHLORIDE [Concomitant]
     Active Substance: METFORMIN HYDROCHLORIDE
  8. nexium [Concomitant]
  9. NURTEC ODT [Concomitant]
     Active Substance: RIMEGEPANT SULFATE
  10. ONDANSETRON [Concomitant]
  11. OZEMPIC [Concomitant]
  12. pepcid [Concomitant]
  13. TOPIRAMATE [Concomitant]
     Active Substance: TOPIRAMATE
  14. VICODIN [Concomitant]
  15. VIIBRYD [Concomitant]
  16. black cohosh [Concomitant]
  17. CALCIUM [Concomitant]
  18. COLACE [Concomitant]
     Active Substance: DOCUSATE SODIUM
  19. MAGNESIUM [Concomitant]
     Active Substance: MAGNESIUM
  20. VITAMIN D3 [Concomitant]
     Active Substance: CHOLECALCIFEROL
  21. VITAMIN E [Concomitant]
     Active Substance: .ALPHA.-TOCOPHEROL
  22. VITAMINS [Concomitant]
     Active Substance: VITAMINS
  23. XYZAL [Concomitant]

REACTIONS (1)
  - Palpitations [None]

NARRATIVE: CASE EVENT DATE: 20240329
